FAERS Safety Report 9795918 (Version 2)
Quarter: 2014Q1

REPORT INFORMATION
  Report Type: Spontaneous
  Country: US (occurrence: PE)
  Receive Date: 20140103
  Receipt Date: 20140103
  Transmission Date: 20141002
  Serious: Yes (Other)
  Sender: FDA-Public Use
  Company Number: US-PFIZER INC-2012332399

PATIENT
  Age: 67 Year
  Sex: Male

DRUGS (1)
  1. SUTENT [Suspect]
     Dosage: 50 MG, CYCLIC (ONCE A DAY FOR 4 WEEKS AT TWO CAPSULES EVERY 24 HOURS)
     Route: 048
     Dates: start: 20120510, end: 20121010

REACTIONS (5)
  - Cerebral ischaemia [Not Recovered/Not Resolved]
  - Pancytopenia [Recovering/Resolving]
  - Anaemia [Recovered/Resolved]
  - Constipation [Recovered/Resolved]
  - Jaundice [Recovered/Resolved]
